FAERS Safety Report 15553025 (Version 1)
Quarter: 2018Q4

REPORT INFORMATION
  Report Type: Spontaneous
  Country: ES (occurrence: ES)
  Receive Date: 20181026
  Receipt Date: 20181026
  Transmission Date: 20190205
  Serious: Yes (Other)
  Sender: FDA-Public Use
  Company Number: ES-BRISTOL-MYERS SQUIBB COMPANY-BMS-2018-099004

PATIENT
  Age: 62 Year
  Sex: Male

DRUGS (1)
  1. SPRYCEL [Suspect]
     Active Substance: DASATINIB
     Indication: CHRONIC MYELOID LEUKAEMIA
     Dosage: 100 MG, (DRUG INTERVAL DOSAGE UNIT NUMBER 1 DAY)
     Route: 048
     Dates: start: 20131105, end: 20170425

REACTIONS (3)
  - Pericardial effusion [Recovered/Resolved]
  - Gastritis haemorrhagic [Recovered/Resolved]
  - Pleural effusion [Recovered/Resolved]

NARRATIVE: CASE EVENT DATE: 201603
